FAERS Safety Report 22279631 (Version 4)
Quarter: 2023Q2

REPORT INFORMATION
  Report Type: Spontaneous
  Country: BR (occurrence: BR)
  Receive Date: 20230503
  Receipt Date: 20230609
  Transmission Date: 20230722
  Serious: Yes (Other)
  Sender: FDA-Public Use
  Company Number: BR-UCBSA-2023022594

PATIENT
  Sex: Male

DRUGS (6)
  1. NEUPRO [Suspect]
     Active Substance: ROTIGOTINE
     Indication: Parkinson^s disease
     Dosage: 4 MILLIGRAM, EV 2 DAYS (QOD)
     Route: 062
     Dates: start: 20170401
  2. NEUPRO [Suspect]
     Active Substance: ROTIGOTINE
     Indication: Restless legs syndrome
  3. AMIODARONE HYDROCHLORIDE [Concomitant]
     Active Substance: AMIODARONE HYDROCHLORIDE
     Indication: Arrhythmia
     Dosage: 100 MILLIGRAM,1 TABLET ONCE DAILY (QD)
  4. ESCITALOPRAM OXALATE [Concomitant]
     Active Substance: ESCITALOPRAM OXALATE
     Indication: Anxiety
     Dosage: 20 MILLIGRAM
  5. CARBIDOPA AND LEVODOPA [Concomitant]
     Active Substance: CARBIDOPA\LEVODOPA
     Indication: Parkinson^s disease
     Dosage: 250/25MG; 4 AND A HALF PILLS A DAY; HALF A PILL EVERY TWO AND A HALF HOURS, ADDING UP TO A MAXIMUM O
  6. AMANTADINE HYDROCHLORIDE [Concomitant]
     Active Substance: AMANTADINE HYDROCHLORIDE
     Indication: Parkinson^s disease
     Dosage: 100 MILLIGRAM, 1 CAPSULE ONCE DAILY (QD)

REACTIONS (22)
  - Arrhythmia [Unknown]
  - Delirium [Unknown]
  - Dementia [Unknown]
  - Erysipelas [Unknown]
  - Glaucoma [Unknown]
  - Dry mouth [Unknown]
  - Insomnia [Unknown]
  - Somnolence [Unknown]
  - Condition aggravated [Unknown]
  - Orthostatic hypotension [Unknown]
  - Anxiety [Unknown]
  - Constipation [Unknown]
  - Nightmare [Unknown]
  - Visual impairment [Unknown]
  - Poor quality sleep [Unknown]
  - Fall [Unknown]
  - Off label use [Unknown]
  - Product dose omission issue [Unknown]
  - Drug ineffective [Unknown]
  - Product adhesion issue [Unknown]
  - Hyperhidrosis [Unknown]
  - Movement disorder [Unknown]

NARRATIVE: CASE EVENT DATE: 20170101
